FAERS Safety Report 8550336-8 (Version None)
Quarter: 2012Q3

REPORT INFORMATION
  Report Type: 
  Country: None (occurrence: None)
  Receive Date: 20120730
  Receipt Date: 20120720
  Transmission Date: 20120928
  Serious: Yes (Death, Hospitalization, Other)
  Sender: FDA-Public Use
  Company Number: JP-PFIZER INC-2011301001

PATIENT
  Age: 69 Year
  Sex: Male
  Weight: 62 kg

DRUGS (29)
  1. IRINOTECAN HYDROCHLORIDE [Suspect]
     Dosage: 240 MG/BODY (149.1 MG/M2), 1X/DAY
     Route: 041
     Dates: start: 20110602, end: 20110602
  2. FLUOROURACIL [Suspect]
     Dosage: 3500 MG/BODY/D1-2 (1087 MG/M2/D1-2)
     Route: 041
     Dates: start: 20110311, end: 20110311
  3. FLUOROURACIL [Suspect]
     Dosage: 3500 MG/BODY/D1-2 (1087 MG/M2/D1-2)
     Route: 041
     Dates: start: 20110707, end: 20110707
  4. CEFOPERAZONE SODIUM/SULBACTAM SODIUM [Concomitant]
     Dosage: UNK
     Dates: start: 20110731, end: 20110808
  5. SEISHOKU [Concomitant]
     Dosage: UNK
     Dates: start: 20110731, end: 20110808
  6. SOLDEM 1 [Concomitant]
     Dosage: UNK
     Dates: start: 20110806, end: 20110808
  7. FLOMAX [Concomitant]
     Dosage: UNK
     Dates: start: 20110811, end: 20110820
  8. FLUOROURACIL [Suspect]
     Dosage: 3500 MG/BODY/D1-2 (1087 MG/M2/D1-2)
     Route: 041
     Dates: start: 20110408, end: 20110408
  9. FLUOROURACIL [Suspect]
     Dosage: 3500 MG/BODY/D1-2 (1087 MG/M2/D1-2)
     Route: 041
     Dates: start: 20110506, end: 20110506
  10. FLUOROURACIL [Suspect]
     Dosage: 3500 MG/BODY/D1-2 (1087 MG/M2/D1-2)
     Route: 041
     Dates: start: 20110602, end: 20110602
  11. FLUOROURACIL [Suspect]
     Dosage: 625 MG/BODY (388.2 MG/M2), 1X/DAY
     Route: 040
     Dates: start: 20110707, end: 20110707
  12. IRINOTECAN HYDROCHLORIDE [Suspect]
     Dosage: 240 MG/BODY (149.1 MG/M2), 1X/DAY
     Route: 041
     Dates: start: 20110408, end: 20110408
  13. FLUOROURACIL [Suspect]
     Dosage: 625 MG/BODY (388.2 MG/M2), 1X/DAY
     Route: 040
     Dates: start: 20110602, end: 20110602
  14. VITAMEDIN INTRAVENOUS [Concomitant]
     Dosage: UNK
     Dates: start: 20110731, end: 20110801
  15. CEFDINIR [Concomitant]
     Dosage: UNK
     Dates: start: 20110805, end: 20110820
  16. CEFDINIR [Concomitant]
     Dosage: UNK
     Dates: start: 20110809, end: 20110810
  17. IRINOTECAN HYDROCHLORIDE [Suspect]
     Dosage: 240 MG/BODY (149.1 MG/M2), 1X/DAY
     Route: 041
     Dates: start: 20110506, end: 20110506
  18. FLUOROURACIL [Suspect]
     Indication: COLORECTAL CANCER
     Dosage: 625 MG/BODY (388.2 MG/M2), 1X/DAY
     Route: 040
     Dates: start: 20110311, end: 20110311
  19. LOPERAMIDE HYDROCHLORIDE [Concomitant]
     Dosage: UNK
     Dates: start: 20110814, end: 20110820
  20. IRINOTECAN HYDROCHLORIDE [Suspect]
     Dosage: 240 MG/BODY (149.1 MG/M2), 1X/DAY
     Route: 041
     Dates: start: 20110707, end: 20110707
  21. AMINO ACIDS NOS/CARBOHYDRATES NOS/ELECTROLYTES NOS [Concomitant]
     Dosage: UNK
     Dates: start: 20110806, end: 20110816
  22. LEVOFOLINATE CALCIUM [Concomitant]
     Indication: COLORECTAL CANCER
     Dosage: 300 MG/BODY (186.3 MG/M2)
     Route: 041
     Dates: start: 20110311, end: 20110707
  23. ASCORBIC ACID [Concomitant]
     Dosage: UNK
     Dates: start: 20110731, end: 20110801
  24. IRINOTECAN HYDROCHLORIDE [Suspect]
     Indication: COLORECTAL CANCER
     Dosage: 240 MG/BODY (149.1 MG/M2), 1X/DAY
     Route: 041
     Dates: start: 20110311, end: 20110311
  25. FLUOROURACIL [Suspect]
     Dosage: 625 MG/BODY (388.2 MG/M2), 1X/DAY
     Route: 040
     Dates: start: 20110408, end: 20110408
  26. FLUOROURACIL [Suspect]
     Dosage: 625 MG/BODY (388.2 MG/M2), 1X/DAY
     Route: 040
     Dates: start: 20110506, end: 20110506
  27. VECTIBIX [Concomitant]
     Indication: COLORECTAL CANCER
     Dosage: 370 MG/BODY
     Route: 041
     Dates: start: 20110325, end: 20110721
  28. POTASSIUM CHLORIDE [Concomitant]
     Dosage: UNK
     Dates: start: 20110731, end: 20110801
  29. METILON [Concomitant]
     Dosage: UNK
     Dates: start: 20110803, end: 20110803

REACTIONS (20)
  - STOMATITIS [None]
  - NEUTROPENIA [None]
  - DISEASE PROGRESSION [None]
  - LEUKOPENIA [None]
  - DERMATITIS ACNEIFORM [None]
  - PRURITUS [None]
  - PYREXIA [None]
  - COLITIS ISCHAEMIC [None]
  - ONYCHOCLASIS [None]
  - HAEMOGLOBIN DECREASED [None]
  - CHOLANGITIS [None]
  - THROMBOCYTOPENIA [None]
  - NAUSEA [None]
  - CONSTIPATION [None]
  - COLORECTAL CANCER [None]
  - HEPATIC FAILURE [None]
  - DIARRHOEA [None]
  - BLOOD BILIRUBIN INCREASED [None]
  - ABDOMINAL PAIN [None]
  - PARONYCHIA [None]
